FAERS Safety Report 7251047-1 (Version None)
Quarter: 2011Q1

REPORT INFORMATION
  Report Type: 
  Country: None (occurrence: None)
  Receive Date: 20110128
  Receipt Date: 20101018
  Transmission Date: 20110831
  Serious: Yes (Hospitalization)
  Sender: FDA-Public Use
  Company Number: US-BAYER-201033567NA

PATIENT
  Sex: Female
  Weight: 68.027 kg

DRUGS (6)
  1. YAZ [Suspect]
     Indication: PREMENSTRUAL SYNDROME
     Dosage: UNK
  2. PREVACID [Concomitant]
  3. UNCODEABLE ^UNCLASSIFIABLE^ [Concomitant]
  4. SEROQUEL [Concomitant]
  5. YAZ [Suspect]
     Indication: ACNE
     Dosage: UNK
     Dates: start: 20040101, end: 20060101
  6. XANAX [Concomitant]
     Dosage: UNK
     Dates: start: 20060101

REACTIONS (7)
  - ABDOMINAL PAIN [None]
  - NAUSEA [None]
  - BILIARY DYSKINESIA [None]
  - ABDOMINAL PAIN UPPER [None]
  - VOMITING [None]
  - DECREASED APPETITE [None]
  - INJURY [None]
